FAERS Safety Report 5669593-0 (Version None)
Quarter: 2008Q1

REPORT INFORMATION
  Report Type: 
  Country: None (occurrence: None)
  Receive Date: 20080317
  Receipt Date: 20080229
  Transmission Date: 20080703
  Serious: No
  Sender: FDA-Public Use
  Company Number: PHHY2008GB02589

PATIENT

DRUGS (1)
  1. ACLASTA [Suspect]

REACTIONS (2)
  - DIARRHOEA [None]
  - HYPOCALCAEMIA [None]
